FAERS Safety Report 16286847 (Version 2)
Quarter: 2019Q2

REPORT INFORMATION
  Report Type: Spontaneous
  Country: AU (occurrence: AU)
  Receive Date: 20190508
  Receipt Date: 20190619
  Transmission Date: 20190711
  Serious: No
  Sender: FDA-Public Use
  Company Number: AU-PFIZER INC-2019190897

PATIENT

DRUGS (10)
  1. HEPARIN SODIUM. [Suspect]
     Active Substance: HEPARIN SODIUM
     Dosage: (INTRAVENOUS UNFRACTIONATED HEPARIN)(EACH 250ML, 0.12G HEPARIN SODIUM)
     Route: 064
  2. METOPROLOL. [Suspect]
     Active Substance: METOPROLOL
     Indication: CEREBROVASCULAR ACCIDENT
     Dosage: UNK
     Route: 064
  3. OXYGEN. [Suspect]
     Active Substance: OXYGEN
     Indication: ACUTE PULMONARY OEDEMA
     Dosage: UNK
     Route: 064
  4. METOPROLOL. [Suspect]
     Active Substance: METOPROLOL
     Dosage: 100 MG, 2X/DAY
     Route: 064
  5. FUROSEMIDE. [Suspect]
     Active Substance: FUROSEMIDE
     Indication: CEREBROVASCULAR ACCIDENT
     Dosage: UNK
     Route: 064
  6. MAGNESIUM SULFATE. [Suspect]
     Active Substance: MAGNESIUM SULFATE
     Dosage: UNK (MAINTENANCE OF 1 G/H)
     Route: 064
  7. ENOXAPARIN [Suspect]
     Active Substance: ENOXAPARIN
     Indication: THROMBOSIS
     Dosage: UNK
     Route: 064
  8. MAGNESIUM SULFATE. [Suspect]
     Active Substance: MAGNESIUM SULFATE
     Indication: BRAIN INJURY
     Dosage: 4 G, UNK (LOADING DOSE OF 4 G IV OVER 15MIN)
     Route: 064
  9. LASIX [Suspect]
     Active Substance: FUROSEMIDE
     Dosage: UNK
     Route: 064
  10. LASIX [Suspect]
     Active Substance: FUROSEMIDE
     Indication: CEREBROVASCULAR ACCIDENT
     Dosage: 40 MG, UNK
     Route: 064

REACTIONS (1)
  - Maternal exposure during pregnancy [Unknown]
